FAERS Safety Report 23929898 (Version 1)
Quarter: 2024Q2

REPORT INFORMATION
  Report Type: Spontaneous
  Country: US (occurrence: US)
  Receive Date: 20240601
  Receipt Date: 20240601
  Transmission Date: 20240716
  Serious: No
  Sender: FDA-Public Use
  Company Number: US-SA-SAC20240530000460

PATIENT
  Age: 71 Year
  Sex: Female
  Weight: 106 kg

DRUGS (5)
  1. DUPIXENT [Suspect]
     Active Substance: DUPILUMAB
     Indication: Asthma
     Dosage: 300 MG, QOW
     Route: 058
  2. PRILOSEC OTC [Concomitant]
     Active Substance: OMEPRAZOLE MAGNESIUM
  3. ADVIL [Concomitant]
     Active Substance: IBUPROFEN
  4. ECOTRIN [Concomitant]
     Active Substance: ASPIRIN
  5. MINERALS\VITAMINS [Concomitant]
     Active Substance: MINERALS\VITAMINS

REACTIONS (1)
  - Respiration abnormal [Unknown]

NARRATIVE: CASE EVENT DATE: 20240501
